FAERS Safety Report 4425865-9 (Version None)
Quarter: 2004Q3

REPORT INFORMATION
  Report Type: 
  Country: None (occurrence: None)
  Receive Date: 20040719
  Receipt Date: 20030804
  Transmission Date: 20050211
  Serious: Yes (Hospitalization)
  Sender: FDA-Public Use
  Company Number: 177027

PATIENT
  Age: 50 Year
  Sex: Female
  Weight: 43.9989 kg

DRUGS (7)
  1. AVONEX [Suspect]
     Indication: MULTIPLE SCLEROSIS
     Dosage: 30 MCG QW IM
     Route: 030
     Dates: start: 19960101, end: 20021101
  2. AVONEX [Suspect]
     Indication: MULTIPLE SCLEROSIS
     Dosage: 30 MCG QW IM
     Route: 030
     Dates: start: 20030701
  3. BACLOFEN [Concomitant]
  4. DYAZIDE [Concomitant]
  5. VALIUM [Concomitant]
  6. FIORINAL [Concomitant]
  7. KLONOPIN [Concomitant]

REACTIONS (9)
  - BALANCE DISORDER [None]
  - CONDITION AGGRAVATED [None]
  - INJECTION SITE HAEMORRHAGE [None]
  - MULTIPLE SCLEROSIS RELAPSE [None]
  - PAIN IN EXTREMITY [None]
  - PYREXIA [None]
  - STRESS SYMPTOMS [None]
  - TOOTH ABSCESS [None]
  - WEIGHT GAIN POOR [None]
